FAERS Safety Report 11217488 (Version 4)
Quarter: 2016Q2

REPORT INFORMATION
  Report Type: Report from Study
  Country: US (occurrence: US)
  Receive Date: 20150625
  Receipt Date: 20160606
  Transmission Date: 20160815
  Serious: Yes (Death, Hospitalization, Other)
  Sender: FDA-Public Use
  Company Number: US-GILEAD-2015-0159893

PATIENT
  Age: 77 Year
  Sex: Male

DRUGS (1)
  1. AMBRISENTAN [Suspect]
     Active Substance: AMBRISENTAN
     Indication: PULMONARY HYPERTENSION
     Dosage: 5 MG, QD
     Route: 065
     Dates: start: 20150602

REACTIONS (11)
  - Lymphoma [Fatal]
  - Fluid retention [Unknown]
  - Chronic obstructive pulmonary disease [Fatal]
  - Sputum discoloured [Unknown]
  - Pulmonary hypertension [Fatal]
  - Lung infection [Unknown]
  - Upper respiratory tract infection [Unknown]
  - Feeling cold [Unknown]
  - Dyspnoea [Unknown]
  - Headache [Unknown]
  - Oedema peripheral [Unknown]
